FAERS Safety Report 15928001 (Version 3)
Quarter: 2019Q2

REPORT INFORMATION
  Report Type: Report from Study
  Country: US (occurrence: US)
  Receive Date: 20190205
  Receipt Date: 20190501
  Transmission Date: 20190711
  Serious: Yes (Other)
  Sender: FDA-Public Use
  Company Number: US-MALLINCKRODT-T201803632

PATIENT
  Sex: Female

DRUGS (4)
  1. REPOSITORY CORTICOTROPIN INJECTION [Suspect]
     Active Substance: CORTICOTROPIN
     Indication: POLYMYOSITIS
     Dosage: 80 UNITS / 1 ML EVERY 3 DAYS / EVERY 72 HOURS
     Route: 058
     Dates: start: 20180412, end: 2018
  2. REPOSITORY CORTICOTROPIN INJECTION [Suspect]
     Active Substance: CORTICOTROPIN
     Dosage: 40 UNITS/0.5ML EVERY 3 DAYS / EVERY 72 HOURS
     Route: 058
     Dates: start: 20180412, end: 2018
  3. METFORMIN [Concomitant]
     Active Substance: METFORMIN HYDROCHLORIDE
     Indication: PRODUCT USED FOR UNKNOWN INDICATION
     Dosage: UNK
     Route: 065
  4. REPOSITORY CORTICOTROPIN INJECTION [Suspect]
     Active Substance: CORTICOTROPIN
     Dosage: 80 UNITS/1 ML EVERY 3 DAYS / EVERY 72 HOURS
     Route: 058
     Dates: start: 2018, end: 20190116

REACTIONS (12)
  - Feeling abnormal [Unknown]
  - Neck mass [Not Recovered/Not Resolved]
  - Condition aggravated [Not Recovered/Not Resolved]
  - Pain [Unknown]
  - Gastrooesophageal reflux disease [Unknown]
  - Thyroid mass [Not Recovered/Not Resolved]
  - Abdominal distension [Not Recovered/Not Resolved]
  - Influenza [Not Recovered/Not Resolved]
  - Therapy cessation [Unknown]
  - Dysphagia [Not Recovered/Not Resolved]
  - Fungal infection [Unknown]
  - Diabetes mellitus [Unknown]

NARRATIVE: CASE EVENT DATE: 2018
